FAERS Safety Report 17760851 (Version 2)
Quarter: 2020Q3

REPORT INFORMATION
  Report Type: Report from Study
  Country: IN (occurrence: IN)
  Receive Date: 20200508
  Receipt Date: 20200627
  Transmission Date: 20201104
  Serious: Yes (Hospitalization, Other)
  Sender: FDA-Public Use
  Company Number: NVSC2019IN073795

PATIENT
  Age: 66 Year
  Sex: Male
  Weight: 68 kg

DRUGS (3)
  1. GALVUS [Suspect]
     Active Substance: VILDAGLIPTIN
     Indication: DIABETES MELLITUS
     Dosage: UNK, BID, (1?0?1,PRE MEAL), SINCE 4 YEARS
     Route: 048
  2. AMARYL [Concomitant]
     Active Substance: GLIMEPIRIDE
     Indication: DIABETES MELLITUS
     Dosage: UNK (SINCE 3 MONTH)
     Route: 048
  3. GALVUS MET [Suspect]
     Active Substance: METFORMIN HYDROCHLORIDE\VILDAGLIPTIN
     Indication: DIABETES MELLITUS
     Dosage: 1 DF, BID (1?0?1), 50/500 (UNITS NOT PROVIDED), SINCE 4 YEARS
     Route: 048

REACTIONS (6)
  - Hypertension [Unknown]
  - Cardiac discomfort [Unknown]
  - Gastrooesophageal reflux disease [Unknown]
  - Blood urea increased [Unknown]
  - Hyperglycaemia [Unknown]
  - Blood creatinine increased [Unknown]

NARRATIVE: CASE EVENT DATE: 20191212
